FAERS Safety Report 9091602 (Version 1)
Quarter: 2013Q1

REPORT INFORMATION
  Report Type: Spontaneous
  Country: US (occurrence: US)
  Receive Date: 20130219
  Receipt Date: 20130219
  Transmission Date: 20140127
  Serious: Yes (Other)
  Sender: FDA-Public Use
  Company Number: US-MYLANLABS-2013S1003264

PATIENT
  Age: 73 Year
  Sex: Female

DRUGS (8)
  1. FOSAMAX [Suspect]
     Indication: OSTEOPOROSIS
     Route: 048
     Dates: start: 200312, end: 200802
  2. FOSAMAX [Suspect]
     Indication: OSTEOPOROSIS PROPHYLAXIS
     Route: 048
     Dates: start: 200312, end: 200802
  3. ALENDRONATE SODIUM [Suspect]
     Indication: OSTEOPOROSIS
     Route: 048
     Dates: start: 200803, end: 201005
  4. ALENDRONATE SODIUM [Suspect]
     Indication: OSTEOPOROSIS PROPHYLAXIS
     Route: 048
     Dates: start: 200803, end: 201005
  5. ALENDRONATE SODIUM TABLETS USP [Suspect]
     Indication: OSTEOPOROSIS
     Route: 048
     Dates: start: 201006, end: 201007
  6. ALENDRONATE SODIUM TABLETS USP [Suspect]
     Indication: OSTEOPOROSIS PROPHYLAXIS
     Route: 048
     Dates: start: 201006, end: 201007
  7. ALENDRONATE SODIUM [Suspect]
     Indication: OSTEOPOROSIS
     Route: 048
     Dates: start: 201007, end: 201111
  8. ALENDRONATE SODIUM [Suspect]
     Indication: OSTEOPOROSIS PROPHYLAXIS
     Route: 048
     Dates: start: 201007, end: 201111

REACTIONS (4)
  - Femur fracture [Not Recovered/Not Resolved]
  - Low turnover osteopathy [Not Recovered/Not Resolved]
  - Toxicity to various agents [Not Recovered/Not Resolved]
  - Bone disorder [Not Recovered/Not Resolved]
